FAERS Safety Report 20740657 (Version 1)
Quarter: 2022Q2

REPORT INFORMATION
  Report Type: Spontaneous
  Country: US (occurrence: US)
  Receive Date: 20220422
  Receipt Date: 20220422
  Transmission Date: 20220721
  Serious: Yes (Hospitalization)
  Sender: FDA-Public Use
  Company Number: US-GW PHARMA-2022-US-011415

PATIENT
  Age: 4 Year
  Sex: Male

DRUGS (4)
  1. EPIDIOLEX [Suspect]
     Active Substance: CANNABIDIOL
     Indication: Idiopathic generalised epilepsy
     Dosage: 0.2 MILLILITER, BID
     Route: 048
     Dates: start: 202203, end: 2022
  2. EPIDIOLEX [Suspect]
     Active Substance: CANNABIDIOL
     Dosage: 0.4 MILLILITER, BID
     Route: 048
     Dates: start: 2022, end: 2022
  3. EPIDIOLEX [Suspect]
     Active Substance: CANNABIDIOL
     Dosage: 0.6 MILLILITER, BID
     Route: 048
     Dates: start: 2022, end: 2022
  4. EPIDIOLEX [Suspect]
     Active Substance: CANNABIDIOL
     Dosage: 0.75 MILLILITER, BID
     Route: 048
     Dates: start: 2022

REACTIONS (2)
  - Hospitalisation [Unknown]
  - Off label use [Unknown]

NARRATIVE: CASE EVENT DATE: 20220301
